FAERS Safety Report 24189061 (Version 1)
Quarter: 2024Q3

REPORT INFORMATION
  Report Type: Spontaneous
  Country: US (occurrence: US)
  Receive Date: 20240808
  Receipt Date: 20240808
  Transmission Date: 20241017
  Serious: No
  Sender: OTSUKA
  Company Number: US-OTSUKA-2024_016612

PATIENT
  Sex: Female

DRUGS (1)
  1. ABILIFY [Suspect]
     Active Substance: ARIPIPRAZOLE
     Indication: Product used for unknown indication
     Dosage: UNK (CUTTING A 10MG IN HALF AND TAKING ONE AND ONE HALF 10MG TABLET FOR 15MG DOSE)
     Route: 065

REACTIONS (1)
  - Wrong technique in product usage process [Unknown]
